FAERS Safety Report 8712938 (Version 2)
Quarter: 2012Q4

REPORT INFORMATION
  Report Type: 
  Country: AU (occurrence: AU)
  Receive Date: 20120808
  Receipt Date: 20121016
  Transmission Date: 20130627
  Serious: Yes (Hospitalization, Other)
  Sender: FDA-Public Use
  Company Number: AU-B.I. PHARMACEUTICALS,INC./RIDGEFIELD-2012-AU-01337AU

PATIENT
  Age: 87 None
  Sex: Female
  Weight: 74 kg

DRUGS (9)
  1. PRADAXA [Suspect]
     Indication: ATRIAL FIBRILLATION
     Dosage: 220 mg
     Dates: start: 20110717, end: 20120531
  2. ANPEC [Concomitant]
     Dosage: 80 mg
  3. CRESTOR [Concomitant]
     Dosage: 5 mg
  4. DIGOXIN [Concomitant]
     Dosage: 0.0625 mg
  5. NEXIUM [Concomitant]
     Dosage: 40 mg
  6. OSTELIN [Concomitant]
     Dosage: 1000 U
  7. PANADOL OSTEO [Concomitant]
  8. RAMIPRIL [Concomitant]
     Dosage: 1.25 mg
  9. ZYLOPRIM [Concomitant]
     Dosage: 100 mg

REACTIONS (7)
  - Colon cancer recurrent [Unknown]
  - Haemoglobin decreased [Recovered/Resolved]
  - Serum ferritin decreased [Recovered/Resolved]
  - Sternal fracture [Recovered/Resolved]
  - Road traffic accident [Recovered/Resolved]
  - Herpes zoster [Unknown]
  - Occult blood [Recovered/Resolved]
